FAERS Safety Report 7328515-7 (Version None)
Quarter: 2011Q1

REPORT INFORMATION
  Report Type: 
  Country: None (occurrence: None)
  Receive Date: 20110218
  Receipt Date: 20110206
  Transmission Date: 20110831
  Serious: Yes (Hospitalization, Other)
  Sender: FDA-Public Use
  Company Number: 1000018299

PATIENT
  Age: 87 Year
  Sex: Male
  Weight: 70 kg

DRUGS (2)
  1. MEMANTINE HCL [Suspect]
     Dosage: (100 MG, ONCE), ORAL
     Route: 048
     Dates: start: 20110115, end: 20110115
  2. PHENYTOIN [Suspect]
     Dosage: (900 MG, ONCE), ORAL
     Route: 048
     Dates: start: 20110115, end: 20110115

REACTIONS (5)
  - MULTIPLE DRUG OVERDOSE INTENTIONAL [None]
  - SUICIDE ATTEMPT [None]
  - SOMNOLENCE [None]
  - APHASIA [None]
  - DYSARTHRIA [None]
